FAERS Safety Report 9283591 (Version 2)
Quarter: 2013Q2

REPORT INFORMATION
  Report Type: Spontaneous
  Country: FR (occurrence: None)
  Receive Date: 20130506
  Receipt Date: 20130510
  Transmission Date: 20140414
  Serious: No
  Sender: FDA-Public Use
  Company Number: 2013-1825

PATIENT
  Age: 56 Year
  Sex: Female

DRUGS (1)
  1. AZZALURE (BOTULINUM TOXIN TYPE A) (BOTULINUM TOXIN TYPE A) [Suspect]
     Indication: SKIN WRINKLING
     Dates: start: 20121116, end: 20121116

REACTIONS (2)
  - Dysphagia [None]
  - Dry mouth [None]
